FAERS Safety Report 9767334 (Version 2)
Quarter: 2014Q1

REPORT INFORMATION
  Report Type: Spontaneous
  Country: GB (occurrence: GB)
  Receive Date: 20131217
  Receipt Date: 20140326
  Transmission Date: 20141002
  Serious: Yes (Hospitalization)
  Sender: FDA-Public Use
  Company Number: GB-ASTRAZENECA-2013SE89835

PATIENT
  Sex: Female

DRUGS (3)
  1. ARIMIDEX [Suspect]
     Route: 048
     Dates: start: 2013
  2. ARIMIDEX [Suspect]
     Dosage: GENERIC
     Route: 048
  3. LEVOTHYROXINE [Concomitant]

REACTIONS (3)
  - Fall [Unknown]
  - Upper limb fracture [Unknown]
  - Hand fracture [Unknown]
